FAERS Safety Report 7074330-1 (Version None)
Quarter: 2010Q4

REPORT INFORMATION
  Report Type: 
  Country: None (occurrence: None)
  Receive Date: 20101029
  Receipt Date: 20101005
  Transmission Date: 20110411
  Serious: Yes (Hospitalization)
  Sender: FDA-Public Use
  Company Number: US-BAYER-201037644NA

PATIENT
  Age: 21 Year
  Sex: Female
  Weight: 53 kg

DRUGS (3)
  1. YASMIN [Suspect]
     Indication: CONTRACEPTION
     Route: 048
     Dates: start: 20061101, end: 20080101
  2. DROSPIRENONE AND ETHINYL ESTRADIOL [Suspect]
     Indication: CONTRACEPTION
     Route: 048
     Dates: start: 20080101, end: 20090501
  3. PROTONIX [Concomitant]

REACTIONS (8)
  - ABDOMINAL PAIN [None]
  - BILIARY DYSKINESIA [None]
  - DIARRHOEA [None]
  - HYPERHIDROSIS [None]
  - MUSCLE SPASMS [None]
  - NAUSEA [None]
  - VOMITING [None]
  - WEIGHT DECREASED [None]
